FAERS Safety Report 26122247 (Version 1)
Quarter: 2025Q4

REPORT INFORMATION
  Report Type: Spontaneous
  Country: KR (occurrence: KR)
  Receive Date: 20251204
  Receipt Date: 20251204
  Transmission Date: 20260117
  Serious: Yes (Other)
  Sender: MYLAN
  Company Number: KR-MYLANLABS-2025M1102962

PATIENT
  Sex: Female

DRUGS (2)
  1. NORVASC [Suspect]
     Active Substance: AMLODIPINE BESYLATE
     Indication: Syncope
     Dosage: 5 MILLIGRAM, QD (ONCE DAILY)
     Dates: start: 20050617
  2. ATENOLOL [Suspect]
     Active Substance: ATENOLOL
     Indication: Syncope
     Dosage: 1 DOSAGE FORM, QD (ONCE DAILY)
     Dates: start: 20050617

REACTIONS (4)
  - Syncope [Recovered/Resolved]
  - Dizziness [Recovered/Resolved]
  - Nausea [Recovered/Resolved]
  - Product use in unapproved indication [Unknown]

NARRATIVE: CASE EVENT DATE: 20050617
